FAERS Safety Report 5078488-5 (Version None)
Quarter: 2006Q3

REPORT INFORMATION
  Report Type: 
  Country: None (occurrence: None)
  Receive Date: 20060811
  Receipt Date: 20051102
  Transmission Date: 20061208
  Serious: Yes (Hospitalization)
  Sender: FDA-Public Use
  Company Number: GB-SANOFI-SYNTHELABO-F01200502302

PATIENT
  Sex: Male

DRUGS (15)
  1. CEFTRIAXONE [Concomitant]
     Dates: start: 20051027
  2. METRONIDAZOLE [Concomitant]
     Dates: start: 20051024
  3. FERROUS SULFATE TAB [Concomitant]
  4. ACETAMINOPHEN [Concomitant]
  5. TRAMADOL HCL [Concomitant]
  6. PENTASA [Concomitant]
  7. THIAMINE [Concomitant]
  8. SLOW-K [Concomitant]
     Dates: start: 20050916
  9. DOMPERIDONE [Concomitant]
     Dates: start: 20050601
  10. DEXAMETHASONE TAB [Concomitant]
     Dates: start: 20050601
  11. GRANISETRON  HCL [Concomitant]
     Dates: start: 20050601
  12. AVASTIN [Suspect]
     Route: 042
     Dates: start: 20050601, end: 20050601
  13. LEUCOVORIN CALCIUM [Suspect]
     Route: 042
     Dates: start: 20050601, end: 20050601
  14. FLUOROURACIL [Suspect]
     Dosage: 400MG/M2 IV BOLUS AND 600MG/M2 CONTINUOUS INFUSION Q2W
     Route: 042
     Dates: start: 20050601, end: 20050601
  15. OXALIPLATIN [Suspect]
     Indication: COLON CANCER
     Route: 042
     Dates: start: 20050601, end: 20050601

REACTIONS (4)
  - DEHYDRATION [None]
  - DIARRHOEA [None]
  - FEBRILE NEUTROPENIA [None]
  - RENAL IMPAIRMENT [None]
